FAERS Safety Report 7764136-X (Version None)
Quarter: 2011Q3

REPORT INFORMATION
  Report Type: 
  Country: None (occurrence: None)
  Receive Date: 20110920
  Receipt Date: 20110920
  Transmission Date: 20111222
  Serious: No
  Sender: FDA-Public Use
  Company Number: None

PATIENT
  Sex: Male

DRUGS (1)
  1. LORAZEPAM [Suspect]
     Indication: ANXIETY
     Dosage: 1 MG ONCE/DAY PO
     Route: 048
     Dates: start: 20101201, end: 20110101

REACTIONS (2)
  - ASTHENIA [None]
  - NAUSEA [None]
